FAERS Safety Report 17190260 (Version 2)
Quarter: 2020Q1

REPORT INFORMATION
  Report Type: Spontaneous
  Country: US (occurrence: US)
  Receive Date: 20191223
  Receipt Date: 20200109
  Transmission Date: 20200409
  Serious: Yes (Other)
  Sender: FDA-Public Use
  Company Number: US-TEVA-2019-US-1156615

PATIENT
  Age: 8 Month
  Sex: Male

DRUGS (3)
  1. ADRENOCORTICOTROPIC HORMONE [Suspect]
     Active Substance: CORTICOTROPIN
     Indication: INFANTILE SPASMS
     Dosage: DOSE: 150 U/M2 (HIGH-DOSE)
     Route: 065
  2. VIGABATRIN. [Suspect]
     Active Substance: VIGABATRIN
     Indication: INFANTILE SPASMS
     Dosage: INITIAL DOSE UNKNOWN; TITRATED TO 150 MG/KG/DAY
     Route: 065
  3. LEVETIRACETAM. [Concomitant]
     Active Substance: LEVETIRACETAM
     Indication: GENERALISED TONIC-CLONIC SEIZURE
     Route: 065

REACTIONS (3)
  - Epidural lipomatosis [Recovered/Resolved]
  - Cushing^s syndrome [Unknown]
  - Encephalopathy [Recovered/Resolved]
